FAERS Safety Report 16885697 (Version 1)
Quarter: 2019Q4

REPORT INFORMATION
  Report Type: Spontaneous
  Country: GB (occurrence: GB)
  Receive Date: 20191004
  Receipt Date: 20191004
  Transmission Date: 20200122
  Serious: Yes (Other)
  Sender: FDA-Public Use
  Company Number: GB-ASCEND THERAPEUTICS US, LLC-2075298

PATIENT
  Age: 69 Year
  Sex: Female

DRUGS (2)
  1. OESTRODOSE (ESTRADIOL HEMIHYDRATE), UNKNOWN?4 PUMPS, BUT REDUCED TO 2 [Suspect]
     Active Substance: ESTRADIOL HEMIHYDRATE
  2. ESTROGEL [Suspect]
     Active Substance: ESTRADIOL
     Indication: HORMONE REPLACEMENT THERAPY
     Dates: start: 20190601, end: 20190905

REACTIONS (5)
  - Breast enlargement [Recovering/Resolving]
  - Middle insomnia [Recovering/Resolving]
  - Abnormal weight gain [Not Recovered/Not Resolved]
  - Insomnia [Recovering/Resolving]
  - Breast pain [Recovering/Resolving]

NARRATIVE: CASE EVENT DATE: 20190601
